FAERS Safety Report 22125250 (Version 1)
Quarter: 2023Q1

REPORT INFORMATION
  Report Type: Spontaneous
  Country: US (occurrence: None)
  Receive Date: 20230321
  Receipt Date: 20230321
  Transmission Date: 20230417
  Serious: Yes (Hospitalization)
  Sender: FDA-Public Use
  Company Number: None

PATIENT
  Age: 70 Year
  Sex: Female

DRUGS (1)
  1. ORENCIA [Suspect]
     Active Substance: ABATACEPT
     Dosage: OTHER FREQUENCY : /A;?
     Route: 058

REACTIONS (4)
  - Nausea [None]
  - Vomiting [None]
  - Dehydration [None]
  - Fall [None]

NARRATIVE: CASE EVENT DATE: 20230321
